FAERS Safety Report 13267952 (Version 3)
Quarter: 2017Q1

REPORT INFORMATION
  Report Type: Spontaneous
  Country: DE (occurrence: DE)
  Receive Date: 20170224
  Receipt Date: 20170328
  Transmission Date: 20170428
  Serious: Yes (Hospitalization, Other)
  Sender: FDA-Public Use
  Company Number: DE-ENDO PHARMACEUTICALS INC-2017-000925

PATIENT
  Age: 60 Year
  Sex: Male
  Weight: 98 kg

DRUGS (6)
  1. FORTESTA [Suspect]
     Active Substance: TESTOSTERONE
     Dosage: UNKNOWN, LOWER DOSAGE
     Route: 061
     Dates: start: 2016, end: 2016
  2. FORTESTA [Suspect]
     Active Substance: TESTOSTERONE
     Dosage: 60 MG, (6 DEPRESSIONS) IN THE MORNING TO THE SHOULDERS
     Route: 061
     Dates: start: 201612, end: 20170201
  3. FORTESTA [Suspect]
     Active Substance: TESTOSTERONE
     Indication: HYPOGONADISM
     Dosage: 60 MG, (6 DEPRESSIONS) IN THE MORNING TO THE ABDOMEN
     Route: 061
     Dates: start: 20161021, end: 2016
  4. FORTESTA [Suspect]
     Active Substance: TESTOSTERONE
     Dosage: 60 MG, (6 DEPRESSIONS) IN THE MORNING TO THE SHOULDERS
     Route: 061
     Dates: start: 201702, end: 20170212
  5. MARCUMAR [Concomitant]
     Active Substance: PHENPROCOUMON
     Indication: PRODUCT USED FOR UNKNOWN INDICATION
     Dosage: UNK UNKNOWN, UNK
     Route: 065
  6. METOPROLOL. [Concomitant]
     Active Substance: METOPROLOL
     Indication: HYPERTENSION
     Dosage: UNK UNKNOWN, UNK
     Route: 065

REACTIONS (8)
  - Aggression [Recovered/Resolved]
  - Arrhythmia [Recovered/Resolved]
  - Bronchitis [Recovered/Resolved]
  - Drug administered at inappropriate site [Recovered/Resolved]
  - Supraventricular extrasystoles [Unknown]
  - Atrial fibrillation [Recovered/Resolved]
  - Drug dose omission [Recovered/Resolved]
  - Drug prescribing error [Recovered/Resolved]

NARRATIVE: CASE EVENT DATE: 201611
